FAERS Safety Report 5213699-7 (Version None)
Quarter: 2007Q1

REPORT INFORMATION
  Report Type: 
  Country: None (occurrence: None)
  Receive Date: 20070119
  Receipt Date: 20070108
  Transmission Date: 20070707
  Serious: Yes (Other)
  Sender: FDA-Public Use
  Company Number: US-PFIZER INC-2007003252

PATIENT
  Sex: Female
  Weight: 70.3 kg

DRUGS (8)
  1. CHANTIX [Suspect]
     Indication: SMOKING CESSATION THERAPY
  2. LIPITOR [Concomitant]
  3. KLONOPIN [Concomitant]
  4. CYMBALTA [Concomitant]
     Indication: DEPRESSION
  5. TEGRETOL [Concomitant]
     Indication: BIPOLAR DISORDER
  6. SEROQUEL [Concomitant]
     Indication: MANIA
  7. HYDROCHLOROTHIAZIDE [Concomitant]
     Indication: OEDEMA
  8. UNITHROID [Concomitant]
     Indication: THYROID DISORDER

REACTIONS (5)
  - ALCOHOL USE [None]
  - ANXIETY [None]
  - COSTOCHONDRITIS [None]
  - SLEEP DISORDER [None]
  - WEIGHT INCREASED [None]
